FAERS Safety Report 19322491 (Version 1)
Quarter: 2021Q2

REPORT INFORMATION
  Report Type: Other
  Country: US (occurrence: US)
  Receive Date: 20210528
  Receipt Date: 20210528
  Transmission Date: 20210717
  Serious: Yes (Hospitalization)
  Sender: FDA-Public Use
  Company Number: US-ROCHE-2836632

PATIENT
  Age: 46 Year
  Sex: Female
  Weight: 98.06 kg

DRUGS (2)
  1. OCREVUS [Suspect]
     Active Substance: OCRELIZUMAB
     Indication: RELAPSING-REMITTING MULTIPLE SCLEROSIS
     Dosage: DATE OF TREATMENT: 21/MAY/2020
     Route: 042
     Dates: start: 20200507
  2. OCREVUS [Suspect]
     Active Substance: OCRELIZUMAB
     Dosage: DATE OF TREATMENT:   17/MAY/2021
     Route: 042
     Dates: start: 20201104

REACTIONS (4)
  - Throat irritation [Unknown]
  - Fatigue [Unknown]
  - COVID-19 [Not Recovered/Not Resolved]
  - Erythema [Unknown]

NARRATIVE: CASE EVENT DATE: 20210414
